FAERS Safety Report 4587151-6 (Version None)
Quarter: 2005Q1

REPORT INFORMATION
  Report Type: 
  Country: None (occurrence: None)
  Receive Date: 20050215
  Receipt Date: 20050201
  Transmission Date: 20050727
  Serious: Yes (Other)
  Sender: FDA-Public Use
  Company Number: 2004-0007491

PATIENT
  Age: 56 Year
  Sex: Male

DRUGS (6)
  1. VIREAD [Suspect]
     Indication: HIV INFECTION
     Dates: start: 20040401, end: 20040910
  2. VIREAD [Suspect]
     Indication: HIV INFECTION
     Dates: start: 20040901
  3. VIRAMUNE [Concomitant]
  4. NORVIR [Concomitant]
  5. LEXIVA (FOSAMPRENAVIR) [Concomitant]
  6. ANTIHYPERTENSIVES (ANTIHYPERTENSIVES) [Concomitant]

REACTIONS (3)
  - AMNESIA [None]
  - LOSS OF CONSCIOUSNESS [None]
  - NEUROSYPHILIS [None]
